FAERS Safety Report 6301286-9 (Version None)
Quarter: 2009Q3

REPORT INFORMATION
  Report Type: 
  Country: None (occurrence: None)
  Receive Date: 20090807
  Receipt Date: 20090730
  Transmission Date: 20100115
  Serious: Yes (Death, Hospitalization)
  Sender: FDA-Public Use
  Company Number: IL-AVENTIS-200916792GDDC

PATIENT
  Age: 72 Year
  Sex: Male
  Weight: 74.4 kg

DRUGS (7)
  1. DOCETAXEL [Suspect]
     Route: 042
     Dates: start: 20090526, end: 20090630
  2. AVASTIN [Suspect]
     Dosage: DOSE: UNK
     Route: 042
     Dates: start: 20090526, end: 20090622
  3. CISPLATIN [Suspect]
     Dosage: DOSE: UNK
     Route: 042
     Dates: start: 20090526, end: 20090630
  4. SIMOVIL [Concomitant]
     Dates: start: 20040101
  5. VASODIP [Concomitant]
     Indication: HYPERTENSION
     Route: 048
     Dates: start: 20070101
  6. ALLORIL [Concomitant]
     Indication: GOUT
     Route: 048
     Dates: start: 20050101
  7. TRAMADEX [Concomitant]
     Route: 048
     Dates: start: 20090521

REACTIONS (3)
  - DIARRHOEA [None]
  - EMBOLISM [None]
  - RENAL FAILURE ACUTE [None]
